FAERS Safety Report 6603427-2 (Version None)
Quarter: 2010Q1

REPORT INFORMATION
  Report Type: 
  Country: None (occurrence: None)
  Receive Date: 20100226
  Receipt Date: 20090512
  Transmission Date: 20100710
  Serious: No
  Sender: FDA-Public Use
  Company Number: A0783752A

PATIENT
  Age: 70 Year
  Sex: Male

DRUGS (6)
  1. VALTREX [Suspect]
     Dosage: 500MG PER DAY
     Route: 048
  2. CRESTOR [Concomitant]
  3. ZETIA [Concomitant]
  4. ACEON [Concomitant]
  5. MULTI-VITAMINS [Concomitant]
  6. FISH OIL [Concomitant]

REACTIONS (1)
  - DRUG INEFFECTIVE [None]
